FAERS Safety Report 10655323 (Version 2)
Quarter: 2014Q4

REPORT INFORMATION
  Report Type: Spontaneous
  Country: US (occurrence: US)
  Receive Date: 20141216
  Receipt Date: 20141229
  Transmission Date: 20150529
  Serious: Yes (Other)
  Sender: FDA-Public Use
  Company Number: US-BAXTER-2014BAX073257

PATIENT
  Age: 61 Year
  Sex: Female

DRUGS (2)
  1. DIANEAL LOW CALCIUM PERITONEAL DIALYSIS SOLUTION WITH DEXTROSE [Suspect]
     Active Substance: CALCIUM CHLORIDE\DEXTROSE\MAGNESIUM CHLORIDE\SODIUM CHLORIDE\SODIUM LACTATE
     Indication: CHRONIC KIDNEY DISEASE
     Route: 033
     Dates: start: 20130509
  2. EXTRANEAL [Suspect]
     Active Substance: CALCIUM CHLORIDE\ICODEXTRIN\MAGNESIUM CHLORIDE\SODIUM CHLORIDE\SODIUM LACTATE
     Indication: CHRONIC KIDNEY DISEASE
     Route: 033
     Dates: start: 20130509

REACTIONS (1)
  - Rheumatoid arthritis [Recovering/Resolving]

NARRATIVE: CASE EVENT DATE: 20141205
